FAERS Safety Report 12995260 (Version 2)
Quarter: 2016Q4

REPORT INFORMATION
  Report Type: Spontaneous
  Country: US (occurrence: US)
  Receive Date: 20161202
  Receipt Date: 20161214
  Transmission Date: 20170207
  Serious: No
  Sender: FDA-Public Use
  Company Number: US-AKORN PHARMACEUTICALS-2016AKN00859

PATIENT
  Sex: Female

DRUGS (2)
  1. MYORISAN [Suspect]
     Active Substance: ISOTRETINOIN
     Indication: ACNE
     Dosage: 40 MG, 2X/DAY
     Dates: start: 20160915, end: 201611
  2. IMPLANON [Concomitant]
     Active Substance: ETONOGESTREL

REACTIONS (1)
  - Pregnancy test false positive [Not Recovered/Not Resolved]

NARRATIVE: CASE EVENT DATE: 2016
